FAERS Safety Report 8544545-1 (Version None)
Quarter: 2012Q3

REPORT INFORMATION
  Report Type: 
  Country: None (occurrence: None)
  Receive Date: 20120727
  Receipt Date: 20120718
  Transmission Date: 20120928
  Serious: Yes (Hospitalization)
  Sender: FDA-Public Use
  Company Number: US-SANOFI-AVENTIS-2012SA051091

PATIENT
  Sex: Male
  Weight: 90.7 kg

DRUGS (5)
  1. ASPIRIN [Suspect]
  2. LISINOPRIL [Suspect]
     Indication: BLOOD PRESSURE
  3. PLAVIX [Suspect]
  4. COREG [Suspect]
     Indication: STENT PLACEMENT
     Dates: start: 20080101
  5. LIPITOR [Suspect]
     Dates: start: 20070101

REACTIONS (4)
  - STRESS [None]
  - BLOOD GLUCOSE INCREASED [None]
  - CORONARY ARTERY OCCLUSION [None]
  - CHEST PAIN [None]
